FAERS Safety Report 19582056 (Version 1)
Quarter: 2021Q3

REPORT INFORMATION
  Report Type: Spontaneous
  Country: US (occurrence: US)
  Receive Date: 20210720
  Receipt Date: 20210720
  Transmission Date: 20211014
  Serious: No
  Sender: FDA-Public Use
  Company Number: None

PATIENT
  Age: 83 Year
  Sex: Female

DRUGS (1)
  1. AMMONIUM LACTATE LOTION [Suspect]
     Active Substance: AMMONIUM LACTATE
     Route: 061
     Dates: start: 20210628

REACTIONS (1)
  - Rash [None]

NARRATIVE: CASE EVENT DATE: 20210720
